FAERS Safety Report 18742380 (Version 8)
Quarter: 2021Q1

REPORT INFORMATION
  Report Type: Report from Study
  Country: CO (occurrence: CO)
  Receive Date: 20210114
  Receipt Date: 20210224
  Transmission Date: 20210419
  Serious: Yes (Hospitalization)
  Sender: FDA-Public Use
  Company Number: CO-EISAI MEDICAL RESEARCH-EC-2021-086510

PATIENT
  Age: 61 Year
  Sex: Female
  Weight: 59.3 kg

DRUGS (11)
  1. ALIZAPRIDE [Concomitant]
     Active Substance: ALIZAPRIDE
     Dates: start: 20200920
  2. BISACODYL. [Concomitant]
     Active Substance: BISACODYL
     Dates: start: 202006
  3. FENTANYL. [Concomitant]
     Active Substance: FENTANYL
     Dates: start: 20201111
  4. GABAPENTIN. [Concomitant]
     Active Substance: GABAPENTIN
     Dates: start: 20201120
  5. LOSARTAN POTASSIUM. [Concomitant]
     Active Substance: LOSARTAN POTASSIUM
     Dates: start: 201501, end: 20210109
  6. ACETAMINOPHEN. [Concomitant]
     Active Substance: ACETAMINOPHEN
     Dates: start: 20200920
  7. ONDANSETRON [Concomitant]
     Active Substance: ONDANSETRON
     Dates: start: 20201106
  8. HYDROMORPHONE [Concomitant]
     Active Substance: HYDROMORPHONE
     Dates: start: 20200920
  9. POLYETHYLENE GLYCOL [Concomitant]
     Active Substance: POLYETHYLENE GLYCOLS
     Dates: start: 20201129
  10. LACTULOSE. [Concomitant]
     Active Substance: LACTULOSE
     Dates: start: 20201111
  11. LENVATINIB [Suspect]
     Active Substance: LENVATINIB
     Indication: NON-SMALL CELL LUNG CANCER METASTATIC
     Dosage: DOSE ALSO REPORTED AS 10 MG
     Route: 048
     Dates: start: 20201228, end: 20210108

REACTIONS (1)
  - Hypertensive crisis [Recovered/Resolved with Sequelae]

NARRATIVE: CASE EVENT DATE: 20210109
